FAERS Safety Report 8476977-4 (Version None)
Quarter: 2012Q2

REPORT INFORMATION
  Report Type: 
  Country: None (occurrence: None)
  Receive Date: 20120629
  Receipt Date: 20120620
  Transmission Date: 20120825
  Serious: No
  Sender: FDA-Public Use
  Company Number: US-BIOGENIDEC-2012BI022634

PATIENT
  Sex: Female

DRUGS (1)
  1. TYSABRI [Suspect]
     Indication: MULTIPLE SCLEROSIS
     Route: 042
     Dates: start: 20101212

REACTIONS (6)
  - DEPRESSION [None]
  - MUSCULOSKELETAL PAIN [None]
  - VOMITING [None]
  - VISUAL ACUITY REDUCED [None]
  - PAIN IN EXTREMITY [None]
  - DRUG EFFECT DECREASED [None]
